FAERS Safety Report 17041918 (Version 1)
Quarter: 2019Q4

REPORT INFORMATION
  Report Type: Spontaneous
  Country: GB (occurrence: GB)
  Receive Date: 20191118
  Receipt Date: 20191118
  Transmission Date: 20200122
  Serious: Yes (Hospitalization)
  Sender: FDA-Public Use
  Company Number: GB-TEVA-2019-GB-1137362

PATIENT
  Age: 73 Year
  Sex: Male

DRUGS (10)
  1. CIPROFLOXACIN. [Suspect]
     Active Substance: CIPROFLOXACIN
     Route: 065
  2. SODIUM HYDROGEN CARBONATE [Concomitant]
     Active Substance: SODIUM BICARBONATE
     Dosage: 3000MG PER DAY
  3. CASSIA [Concomitant]
     Dosage: AT NIGHT (15 MG PER DAY)
  4. AMITRIPTYLINE [Concomitant]
     Active Substance: AMITRIPTYLINE
     Dosage: AT NIGHT (20 MG PER DAY)
  5. FOLIC ACID. [Concomitant]
     Active Substance: FOLIC ACID
     Dosage: 5 MG PER DAY
  6. RANITIDINE. [Concomitant]
     Active Substance: RANITIDINE
     Dosage: 300 MG PER DAY
  7. ADCAL [Concomitant]
     Dosage: PREFERABLY ONE TABLET EACH MORNING AND EVENING (3000 MG PER DAY)
  8. LAXIDO [Concomitant]
     Active Substance: POLYETHYLENE GLYCOL 3350\POTASSIUM CHLORIDE\SODIUM BICARBONATE\SODIUM CHLORIDE
     Dosage: 1-2 SACHETS DAILY
  9. PREDNISOLONE. [Concomitant]
     Active Substance: PREDNISOLONE
     Dosage: DOSE REDUCED FROM 60MG, 40MG, 30MG, 20MG, 10MG, 5MG, 2.5 MG ONCE DAILY.
     Dates: start: 20170712, end: 20170906
  10. TROSPIUM CHLORIDE. [Concomitant]
     Active Substance: TROSPIUM CHLORIDE
     Dosage: 20 MG PER DAY
     Dates: end: 20170714

REACTIONS (1)
  - Tubulointerstitial nephritis [Recovered/Resolved]
